FAERS Safety Report 6772244-5 (Version None)
Quarter: 2010Q2

REPORT INFORMATION
  Report Type: 
  Country: None (occurrence: None)
  Receive Date: 20100616
  Receipt Date: 20090713
  Transmission Date: 20101027
  Serious: No
  Sender: FDA-Public Use
  Company Number: US-ASTRAZENECA-2009UW19539

PATIENT
  Sex: Female

DRUGS (1)
  1. PULMICORT RESPULES [Suspect]
     Dosage: 0.5 MG/ML
     Route: 055

REACTIONS (1)
  - MUSCLE SPASMS [None]
